FAERS Safety Report 9538918 (Version 1)
Quarter: 2013Q2

REPORT INFORMATION
  Report Type: Spontaneous
  Country: US (occurrence: None)
  Receive Date: 20130517
  Receipt Date: 20130517
  Transmission Date: 20140414
  Serious: No
  Sender: FDA-Public Use
  Company Number: 1000042576

PATIENT
  Age: 41 Year
  Sex: Female

DRUGS (10)
  1. VIIBRYD [Suspect]
     Indication: MAJOR DEPRESSION
     Route: 048
     Dates: start: 20130118
  2. LEVOTHROXINE (LEVOTHYROXINE SODIUM) (LEVOTHYROXINE SODIUM) [Concomitant]
  3. ESTRADIOL (ESTRADIOL) (ESTRADIOL) [Concomitant]
  4. NEXIUM (ESOMEPRAZOLE) (ESOMEPRAZOLE) [Concomitant]
  5. GEODON (ZIPRASIDONE) (ZIPRASIDONE) [Concomitant]
  6. TRAZODONE (TRAZODONE) (TRAZODONE) [Concomitant]
  7. TRAMADOL (TRAMADOL) (TRAMADOL) [Concomitant]
  8. IBUPROFEN (IBUPROFEN) (IBUPROFEN) [Concomitant]
  9. NEURONTIN (GABAPENTIN) (GABAFENTIN) [Concomitant]
  10. CYCLOBENZAPRINE (CYCLOBENZAPRINE) (CYCLOBENZAPRINE) [Concomitant]

REACTIONS (2)
  - Fall [None]
  - Ligament sprain [None]
